FAERS Safety Report 10077806 (Version 4)
Quarter: 2016Q4

REPORT INFORMATION
  Report Type: Report from Study
  Country: MX (occurrence: MX)
  Receive Date: 20140414
  Receipt Date: 20161003
  Transmission Date: 20170206
  Serious: Yes (Other)
  Sender: FDA-Public Use
  Company Number: PHHY2014MX045396

PATIENT
  Sex: Female
  Weight: 41 kg

DRUGS (6)
  1. CO-DIOVAN [Suspect]
     Active Substance: HYDROCHLOROTHIAZIDE\VALSARTAN
     Dosage: 0.5 DF (HYDROCHLOROTHIAZIDE 25 MG, VALSARTAN 160 MG) DAILY IN THE MORNING
     Route: 048
  2. ASPIRIN PROTECT [Concomitant]
     Active Substance: ASPIRIN
     Indication: ANTICOAGULANT THERAPY
     Dosage: 1 DF, UNK
     Route: 065
  3. INDERALICI [Concomitant]
     Indication: ARRHYTHMIA
     Dosage: 1 DF, UNK
     Route: 065
     Dates: start: 2012
  4. CO-DIOVAN [Suspect]
     Active Substance: HYDROCHLOROTHIAZIDE\VALSARTAN
     Dosage: 0.5 DF (HYDROCHLOROTHIAZIDE 12.5 MG, VALSARTAN 160 MG), QD
     Route: 065
  5. NORFENON [Concomitant]
     Indication: ARRHYTHMIA
     Dosage: 1 DF, UNK
     Route: 065
     Dates: start: 201305
  6. CO-DIOVAN [Suspect]
     Active Substance: HYDROCHLOROTHIAZIDE\VALSARTAN
     Indication: HYPERTENSION
     Dosage: 1 DF (HYDROCHLOROTHIAZIDE 25 MG, VALSARTAN 160 MG), QD
     Route: 048
     Dates: start: 200908

REACTIONS (12)
  - Vertigo [Recovered/Resolved]
  - Weight decreased [Recovered/Resolved]
  - Headache [Unknown]
  - Diarrhoea [Recovered/Resolved]
  - Drug prescribing error [Not Recovered/Not Resolved]
  - Vomiting [Recovered/Resolved]
  - Blood pressure increased [Unknown]
  - Wrong technique in product usage process [Not Recovered/Not Resolved]
  - Prescribed underdose [Not Recovered/Not Resolved]
  - Blood pressure decreased [Recovered/Resolved]
  - Depression [Recovered/Resolved]
  - Arrhythmia [Not Recovered/Not Resolved]
